FAERS Safety Report 5713553-8 (Version None)
Quarter: 2008Q2

REPORT INFORMATION
  Report Type: 
  Country: None (occurrence: None)
  Receive Date: 20080422
  Receipt Date: 20080414
  Transmission Date: 20081010
  Serious: Yes (Other)
  Sender: FDA-Public Use
  Company Number: US-PFIZER INC-2008032933

PATIENT

DRUGS (1)
  1. CELEBREX [Suspect]
     Indication: PAIN MANAGEMENT

REACTIONS (1)
  - CARDIOVASCULAR DISORDER [None]
